FAERS Safety Report 22230921 (Version 1)
Quarter: 2023Q2

REPORT INFORMATION
  Report Type: Spontaneous
  Country: BR (occurrence: BR)
  Receive Date: 20230420
  Receipt Date: 20230420
  Transmission Date: 20230721
  Serious: Yes (Other)
  Sender: FDA-Public Use
  Company Number: BR-CELLTRION INC.-2023BR008133

PATIENT

DRUGS (6)
  1. HERZUMA [Suspect]
     Active Substance: TRASTUZUMAB-PKRB
     Indication: Breast cancer
     Dosage: 298.5 MG (DURING 10 MINUTES)
     Route: 042
     Dates: start: 20230404, end: 20230404
  2. DEXAMETHASONE [Concomitant]
     Active Substance: DEXAMETHASONE
     Indication: Premedication
     Dosage: 1 TIME
     Route: 042
     Dates: start: 20230404, end: 20230404
  3. ONDANSETRON [Concomitant]
     Active Substance: ONDANSETRON
     Indication: Premedication
     Dosage: 1 TIME
     Route: 042
     Dates: start: 20230404, end: 20230404
  4. DIPHENHYDRAMINE [Concomitant]
     Active Substance: DIPHENHYDRAMINE
     Indication: Premedication
     Dosage: 1 TIME
     Route: 042
     Dates: start: 20230404, end: 20230404
  5. HYDROCORTISONE [Concomitant]
     Active Substance: HYDROCORTISONE
     Indication: Chemotherapy
     Dosage: 1 TIME
     Route: 042
     Dates: start: 20230404, end: 20230404
  6. HYDROCORTISONE [Concomitant]
     Active Substance: HYDROCORTISONE
     Indication: Premedication
     Dosage: DURING 10 MINUTES
     Route: 042
     Dates: start: 20230404, end: 20230404

REACTIONS (2)
  - Hypersensitivity [Recovered/Resolved]
  - Overdose [Unknown]

NARRATIVE: CASE EVENT DATE: 20230404
